FAERS Safety Report 17095280 (Version 1)
Quarter: 2019Q4

REPORT INFORMATION
  Report Type: Spontaneous
  Country: US (occurrence: US)
  Receive Date: 20191130
  Receipt Date: 20191130
  Transmission Date: 20200122
  Serious: No
  Sender: FDA-Public Use
  Company Number: US-TEVA-2019-US-1144334

PATIENT
  Age: 46 Year
  Sex: Female

DRUGS (1)
  1. MEDROXYPROGESTERONE ACETATE TABLETS [Suspect]
     Active Substance: MEDROXYPROGESTERONE ACETATE
     Indication: MENORRHAGIA
     Route: 065
     Dates: start: 20191108, end: 20191121

REACTIONS (5)
  - Facial pain [Recovered/Resolved]
  - Ear pain [Recovered/Resolved]
  - Lip pain [Recovered/Resolved]
  - Glossodynia [Recovered/Resolved]
  - Rash [Recovered/Resolved]

NARRATIVE: CASE EVENT DATE: 20191109
